FAERS Safety Report 4934290-3 (Version None)
Quarter: 2006Q1

REPORT INFORMATION
  Report Type: 
  Country: None (occurrence: None)
  Receive Date: 20060307
  Receipt Date: 20060223
  Transmission Date: 20060701
  Serious: Yes (Hospitalization)
  Sender: FDA-Public Use
  Company Number: DE-ROCHE-437637

PATIENT
  Age: 71 Year
  Sex: Female
  Weight: 50.7 kg

DRUGS (10)
  1. CAPECITABINE [Suspect]
     Dosage: GIVEN FROM DAYS ONE TO FOURTEEN OF A THREE WEEK CYCLE.
     Route: 048
     Dates: start: 20060118, end: 20060211
  2. CISPLATIN [Suspect]
     Dosage: GIVEN ON DAY ONE OF A THREE WEEK CYCLE.
     Route: 042
     Dates: start: 20060118, end: 20060212
  3. ESOMEPRAZOLE [Concomitant]
  4. CARVEDILOL [Concomitant]
     Dates: end: 20060212
  5. FERROUS SULFATE TAB [Concomitant]
     Dates: start: 20060208
  6. MCP [Concomitant]
     Route: 042
     Dates: start: 20060208, end: 20060208
  7. TROPISETRON [Concomitant]
     Route: 042
     Dates: start: 20060208, end: 20060208
  8. DEXAMETHASONE [Concomitant]
     Route: 042
     Dates: start: 20060208, end: 20060208
  9. MCP [Concomitant]
     Route: 048
     Dates: start: 20060209, end: 20060211
  10. DEXAMETHASONE [Concomitant]
     Route: 048
     Dates: start: 20060209, end: 20060211

REACTIONS (3)
  - CHOLANGITIS [None]
  - DEHYDRATION [None]
  - ENTERITIS [None]
